FAERS Safety Report 9286249 (Version 3)
Quarter: 2013Q3

REPORT INFORMATION
  Report Type: Report from Study
  Country: DE (occurrence: DE)
  Receive Date: 20130513
  Receipt Date: 20130712
  Transmission Date: 20140515
  Serious: Yes (Hospitalization)
  Sender: FDA-Public Use
  Company Number: DE-GLAXOSMITHKLINE-B0890544A

PATIENT
  Age: 41 Year
  Sex: Male

DRUGS (2)
  1. PAZOPANIB [Suspect]
     Indication: SARCOMA
     Dates: start: 20120620, end: 20130501
  2. GEMCITABINE [Suspect]
     Indication: SARCOMA
     Dates: start: 20120620, end: 20130502

REACTIONS (1)
  - Pneumonia [Recovering/Resolving]
